FAERS Safety Report 23322218 (Version 1)
Quarter: 2023Q4

REPORT INFORMATION
  Report Type: Spontaneous
  Country: AU (occurrence: AU)
  Receive Date: 20231220
  Receipt Date: 20231220
  Transmission Date: 20240109
  Serious: Yes (Other)
  Sender: FDA-Public Use
  Company Number: AU-PFIZER INC-PV202300203429

PATIENT
  Age: 16 Year
  Sex: Male

DRUGS (7)
  1. CYTARABINE [Suspect]
     Active Substance: CYTARABINE
     Dosage: UNK
     Route: 042
  2. INFLIXIMAB [Suspect]
     Active Substance: INFLIXIMAB
     Dosage: 4 CYCLES Q2WEEKLY
     Route: 042
  3. VINBLASTINE [Suspect]
     Active Substance: VINBLASTINE
     Dosage: 6 CYCLES PER Q4W
     Route: 042
  4. DEXAMETHASONE [Suspect]
     Active Substance: DEXAMETHASONE
     Route: 048
  5. CLADRIBINE [Suspect]
     Active Substance: CLADRIBINE
     Dosage: 5 MG/M2FOR 5 DAYS (5 MONTHLY CYCLES)
     Route: 042
  6. PREDNISONE [Suspect]
     Active Substance: PREDNISONE
     Dosage: 6 CYCLES PER Q4W
     Route: 042
  7. CYCLOSPORINE [Suspect]
     Active Substance: CYCLOSPORINE
     Dosage: UNK

REACTIONS (11)
  - Ataxia [Recovering/Resolving]
  - Brain herniation [Unknown]
  - Brain oedema [Recovered/Resolved]
  - Central nervous system lesion [Recovering/Resolving]
  - Cognitive disorder [Recovering/Resolving]
  - Coma scale abnormal [Unknown]
  - Dysarthria [Unknown]
  - Headache [Unknown]
  - Hydrocephalus [Unknown]
  - Intracranial pressure increased [Recovered/Resolved]
  - Vomiting [Unknown]
